FAERS Safety Report 7510106-6 (Version None)
Quarter: 2011Q2

REPORT INFORMATION
  Report Type: 
  Country: None (occurrence: None)
  Receive Date: 20110527
  Receipt Date: 20110524
  Transmission Date: 20111010
  Serious: Yes (Other)
  Sender: FDA-Public Use
  Company Number: US-PFIZER INC-2011049502

PATIENT
  Sex: Male

DRUGS (7)
  1. LYRICA [Suspect]
     Indication: BACK PAIN
     Dosage: 100 MG, UNK
  2. NEURONTIN [Suspect]
  3. LYRICA [Suspect]
     Indication: NEURALGIA
     Dosage: 75 MG, UNK
     Dates: start: 20100101
  4. LYRICA [Suspect]
     Dosage: 150 MG, UNK
  5. LYRICA [Suspect]
     Dosage: 300 MG, UNK
  6. LYRICA [Suspect]
     Dosage: 200 MG, UNK
  7. LYRICA [Suspect]
     Dosage: 300 MG, 2X/DAY

REACTIONS (6)
  - ABNORMAL DREAMS [None]
  - CONSTIPATION [None]
  - READING DISORDER [None]
  - HALLUCINATION [None]
  - DISTURBANCE IN ATTENTION [None]
  - ALTERED VISUAL DEPTH PERCEPTION [None]
